FAERS Safety Report 23733131 (Version 1)
Quarter: 2024Q2

REPORT INFORMATION
  Report Type: Spontaneous
  Country: US (occurrence: US)
  Receive Date: 20240411
  Receipt Date: 20240411
  Transmission Date: 20240716
  Serious: No
  Sender: FDA-Public Use
  Company Number: US-PFIZER INC-202400080969

PATIENT
  Age: 89 Year
  Sex: Male

DRUGS (2)
  1. BRAFTOVI [Suspect]
     Active Substance: ENCORAFENIB
     Indication: Neoplasm malignant
     Dosage: UNK
  2. MEKTOVI [Suspect]
     Active Substance: BINIMETINIB
     Indication: Neoplasm malignant
     Dosage: UNK

REACTIONS (3)
  - Dysgeusia [Unknown]
  - Weight decreased [Unknown]
  - Decreased appetite [Unknown]
